FAERS Safety Report 12926885 (Version 1)
Quarter: 2016Q4

REPORT INFORMATION
  Report Type: Spontaneous
  Country: US (occurrence: US)
  Receive Date: 20161108
  Receipt Date: 20161108
  Transmission Date: 20170207
  Serious: Yes (Death)
  Sender: FDA-Public Use
  Company Number: US-CONCORDIA PHARMACEUTICALS INC.-GSH201611-005610

PATIENT
  Age: 69 Year
  Sex: Female

DRUGS (5)
  1. LORAZEPAM. [Suspect]
     Active Substance: LORAZEPAM
     Route: 048
  2. METOPROLOL HYDROCHLOROTHIAZIDE [Suspect]
     Active Substance: HYDROCHLOROTHIAZIDE\METOPROLOL TARTRATE
     Route: 048
  3. PAROXETINE. [Suspect]
     Active Substance: PAROXETINE
     Route: 048
  4. AMLODIPINE [Suspect]
     Active Substance: AMLODIPINE BESYLATE
     Route: 048
  5. DONEPEZIL. [Suspect]
     Active Substance: DONEPEZIL
     Route: 048

REACTIONS (1)
  - Completed suicide [Fatal]
